FAERS Safety Report 6471077-7 (Version None)
Quarter: 2009Q4

REPORT INFORMATION
  Report Type: 
  Country: None (occurrence: None)
  Receive Date: 20091203
  Receipt Date: 20091120
  Transmission Date: 20100525
  Serious: Yes (Other)
  Sender: FDA-Public Use
  Company Number: PHHY2009JP49413

PATIENT
  Age: 36 Year
  Sex: Male

DRUGS (3)
  1. TEGRETOL [Suspect]
     Indication: BIPOLAR I DISORDER
     Dosage: 400 MG DAILY
     Route: 048
     Dates: end: 20080801
  2. FLUVOXAMINE MALEATE [Concomitant]
     Dosage: UNK
  3. MIANSERIN [Concomitant]
     Dosage: UNK

REACTIONS (14)
  - ALTERED STATE OF CONSCIOUSNESS [None]
  - CONFUSIONAL STATE [None]
  - DIZZINESS [None]
  - DRUG LEVEL INCREASED [None]
  - DRUG TOXICITY [None]
  - HYPERHIDROSIS [None]
  - HYPERREFLEXIA [None]
  - INAPPROPRIATE SCHEDULE OF DRUG ADMINISTRATION [None]
  - IRRITABILITY [None]
  - MULTIPLE DRUG OVERDOSE INTENTIONAL [None]
  - MYOCLONUS [None]
  - SEROTONIN SYNDROME [None]
  - SPEECH DISORDER [None]
  - TREMOR [None]
